FAERS Safety Report 12262442 (Version 1)
Quarter: 2016Q2

REPORT INFORMATION
  Report Type: Spontaneous
  Country: US (occurrence: US)
  Receive Date: 20160413
  Receipt Date: 20160413
  Transmission Date: 20160815
  Serious: Yes (Hospitalization, Disabling, Other)
  Sender: FDA-Public Use
  Company Number: US-CIPLA LTD.-2016US03794

PATIENT

DRUGS (16)
  1. VANCOMYCIN [Suspect]
     Active Substance: VANCOMYCIN
     Dosage: 500 MG, UNK
     Route: 065
  2. DULOXETINE. [Suspect]
     Active Substance: DULOXETINE
     Indication: FIBROMYALGIA
     Dosage: 60 MG, UNK
     Route: 065
  3. LISINOPRIL. [Suspect]
     Active Substance: LISINOPRIL
     Indication: BLOOD PRESSURE MEASUREMENT
     Dosage: 40 MG, QD
     Route: 065
  4. SERTRALINE [Suspect]
     Active Substance: SERTRALINE HYDROCHLORIDE
     Dosage: UNK
     Route: 065
  5. GABAPENTIN. [Suspect]
     Active Substance: GABAPENTIN
     Dosage: 800 MG, QID, (TAKING 400 MG IN THE MORNING AND IN THE AFTERNOON)
     Route: 065
  6. WARFARIN [Suspect]
     Active Substance: WARFARIN
     Dosage: 5 MG, QD, FOR BLOOD THINNER
     Route: 065
  7. FLUOROURACIL. [Suspect]
     Active Substance: FLUOROURACIL
     Dosage: 5 %, PUT IT ON EVERY MORNING AND NIGHT
     Route: 065
  8. LYRICA [Suspect]
     Active Substance: PREGABALIN
     Dosage: 150 MG, UNK
  9. POTASSIUM [Suspect]
     Active Substance: POTASSIUM
     Dosage: 10 MEQ, UNK
     Route: 065
  10. BISCOPROLOL [Suspect]
     Active Substance: BISOPROLOL
     Indication: BLOOD PRESSURE MEASUREMENT
     Dosage: 10 MG, QD
     Route: 065
  11. LYRICA [Suspect]
     Active Substance: PREGABALIN
     Dosage: 50 MG, BID
     Route: 065
     Dates: start: 201512
  12. BYDUREON [Suspect]
     Active Substance: EXENATIDE
     Dosage: 10 MG, TAKING IT FOR SUGAR, A SHOT ONCE A WEEK
     Route: 065
  13. TORASENIDE [Suspect]
     Active Substance: TORSEMIDE
     Dosage: TAKE IT WHEN THE FLUID BUILDS UP 20 MG TAKE IT WHEN THE FLUID
     Route: 065
  14. HYRDROCODONE [Suspect]
     Active Substance: HYDROCODONE
     Dosage: 10 MG /325 MCG TAKE OVER 4 HOURS PAIN
     Route: 065
  15. METFORMIN HYDROCHLORIDE. [Suspect]
     Active Substance: METFORMIN HYDROCHLORIDE
     Dosage: 100 MG, BID
     Route: 065
  16. DAPTOMYCIN. [Suspect]
     Active Substance: DAPTOMYCIN
     Dosage: 1 MG, QD
     Route: 065

REACTIONS (10)
  - Arthralgia [Unknown]
  - Localised infection [Unknown]
  - Musculoskeletal stiffness [Unknown]
  - Medication error [Unknown]
  - Malaise [Unknown]
  - Oedema peripheral [Unknown]
  - Mobility decreased [Unknown]
  - Suicidal ideation [Unknown]
  - Joint swelling [Unknown]
  - Blister [Unknown]
